FAERS Safety Report 4748436-3 (Version None)
Quarter: 2005Q3

REPORT INFORMATION
  Report Type: 
  Country: None (occurrence: None)
  Receive Date: 20050818
  Receipt Date: 20050805
  Transmission Date: 20060218
  Serious: Yes (Congenital Anomaly, Other)
  Sender: FDA-Public Use
  Company Number: 2005112352

PATIENT
  Sex: Male
  Weight: 2.7216 kg

DRUGS (9)
  1. DEPO-PROVERA [Suspect]
     Indication: CONTRACEPTION
     Dosage: SEE IMAGE
     Dates: start: 20020101, end: 20020101
  2. DEPO-PROVERA [Suspect]
     Indication: CONTRACEPTION
     Dosage: SEE IMAGE
     Dates: start: 20040601, end: 20040601
  3. DEPO-PROVERA [Suspect]
     Indication: CONTRACEPTION
     Dosage: SEE IMAGE
     Dates: start: 20040824, end: 20040824
  4. DEPO-PROVERA [Suspect]
     Indication: CONTRACEPTION
     Dosage: SEE IMAGE
     Dates: start: 20041116, end: 20041116
  5. DEPO-PROVERA [Suspect]
     Indication: CONTRACEPTION
     Dosage: SEE IMAGE
     Dates: start: 20050208, end: 20050208
  6. DEPO-PROVERA [Suspect]
  7. DEPO-PROVERA [Suspect]
  8. DEPO-PROVERA [Suspect]
  9. DEPO-PROVERA [Suspect]

REACTIONS (5)
  - ANOMALY OF EXTERNAL EAR CONGENITAL [None]
  - CONGENITAL ANOMALY [None]
  - CONGENITAL JAW MALFORMATION [None]
  - CONGENITAL ORAL MALFORMATION [None]
  - DRUG EXPOSURE DURING PREGNANCY [None]
